FAERS Safety Report 5088267-0 (Version None)
Quarter: 2006Q3

REPORT INFORMATION
  Report Type: 
  Country: None (occurrence: None)
  Receive Date: 20060823
  Receipt Date: 20060823
  Transmission Date: 20061208
  Serious: No
  Sender: FDA-Public Use
  Company Number: None

PATIENT
  Age: 85 Year
  Sex: Male
  Weight: 129.4 kg

DRUGS (13)
  1. CIPRO IV [Suspect]
     Indication: WHITE BLOOD CELL COUNT INCREASED
     Dosage: 400 MG IV Q12HRS
     Route: 042
     Dates: start: 20060723
  2. CIPRO IV [Suspect]
     Indication: WHITE BLOOD CELL COUNT INCREASED
     Dosage: 400 MG IV Q12HRS
     Route: 042
     Dates: start: 20060724
  3. ATENOLOL [Concomitant]
  4. FERROUS SULFATE TAB [Concomitant]
  5. ATARAX [Concomitant]
  6. SENOKOT [Concomitant]
  7. ALBUTEROL [Concomitant]
  8. MEGACE [Concomitant]
  9. SPIRIVA [Concomitant]
  10. WARFARIN SODIUM [Concomitant]
  11. GLYBURIDE [Concomitant]
  12. HYDROCORTISONE [Concomitant]
  13. AMLACTIN [Concomitant]

REACTIONS (3)
  - CONDITION AGGRAVATED [None]
  - PRURITUS [None]
  - RASH GENERALISED [None]
